FAERS Safety Report 21792672 (Version 1)
Quarter: 2022Q4

REPORT INFORMATION
  Report Type: Report from Study
  Country: US (occurrence: US)
  Receive Date: 20221229
  Receipt Date: 20221229
  Transmission Date: 20230112
  Serious: Yes (Other)
  Sender: FDA-Public Use
  Company Number: US-SUN PHARMACEUTICAL INDUSTRIES LTD-2022R1-370554

PATIENT
  Age: 29 Year
  Sex: Female

DRUGS (7)
  1. DEXAMETHASONE [Suspect]
     Active Substance: DEXAMETHASONE
     Indication: Glomerulonephritis proliferative
     Dosage: UNK
     Route: 065
  2. BORTEZOMIB [Suspect]
     Active Substance: BORTEZOMIB
     Indication: Glomerulonephritis proliferative
     Dosage: UNK
     Route: 065
  3. MYCOPHENOLATE MOFETIL [Suspect]
     Active Substance: MYCOPHENOLATE MOFETIL
     Indication: Glomerulonephritis proliferative
     Dosage: UNK
     Route: 065
  4. AZATHIOPRINE [Suspect]
     Active Substance: AZATHIOPRINE
     Indication: Glomerulonephritis proliferative
     Dosage: UNK
     Route: 065
  5. CYCLOPHOSPHAMIDE [Suspect]
     Active Substance: CYCLOPHOSPHAMIDE
     Indication: Glomerulonephritis proliferative
     Dosage: UNK
     Route: 065
  6. RITUXIMAB [Suspect]
     Active Substance: RITUXIMAB
     Indication: Glomerulonephritis proliferative
     Dosage: UNK
     Route: 065
  7. VOCLOSPORIN [Suspect]
     Active Substance: VOCLOSPORIN
     Indication: Glomerulonephritis proliferative
     Dosage: UNK
     Route: 065

REACTIONS (1)
  - Therapy non-responder [Unknown]
